FAERS Safety Report 17323577 (Version 1)
Quarter: 2020Q1

REPORT INFORMATION
  Report Type: Spontaneous
  Country: CN (occurrence: CN)
  Receive Date: 20200127
  Receipt Date: 20200127
  Transmission Date: 20200409
  Serious: Yes (Disabling)
  Sender: FDA-Public Use
  Company Number: CN-ROCHE-2529590

PATIENT
  Age: 47 Year
  Sex: Female
  Weight: 71 kg

DRUGS (2)
  1. HERCEPTIN [Suspect]
     Active Substance: TRASTUZUMAB
     Indication: RADICAL MASTECTOMY
     Route: 042
     Dates: start: 20190927
  2. HERCEPTIN [Suspect]
     Active Substance: TRASTUZUMAB
     Indication: RADIOTHERAPY

REACTIONS (1)
  - Bone marrow failure [Recovering/Resolving]

NARRATIVE: CASE EVENT DATE: 20191015
